FAERS Safety Report 9403226 (Version 3)
Quarter: 2013Q3

REPORT INFORMATION
  Report Type: Report from Study
  Country: US (occurrence: US)
  Receive Date: 20130716
  Receipt Date: 20130807
  Transmission Date: 20140515
  Serious: Yes (Death, Hospitalization)
  Sender: FDA-Public Use
  Company Number: US-ACTELION-A-US2013-85666

PATIENT
  Age: 58 Year
  Sex: Male

DRUGS (2)
  1. TRACLEER [Suspect]
     Indication: PULMONARY ARTERIAL HYPERTENSION
     Dosage: UNK
     Route: 048
     Dates: end: 20130712
  2. REMODULIN [Concomitant]

REACTIONS (7)
  - Pulmonary arterial hypertension [Fatal]
  - Nephropathy [Unknown]
  - Dialysis [Unknown]
  - Ureteral disorder [Unknown]
  - Renal failure acute [Unknown]
  - Fluid overload [Unknown]
  - Hypotension [Unknown]
